FAERS Safety Report 16775794 (Version 1)
Quarter: 2019Q3

REPORT INFORMATION
  Report Type: Spontaneous
  Country: CH (occurrence: CH)
  Receive Date: 20190905
  Receipt Date: 20190905
  Transmission Date: 20191005
  Serious: Yes (Hospitalization, Other)
  Sender: FDA-Public Use
  Company Number: CH-PFIZER INC-2019376647

PATIENT
  Age: 84 Year
  Sex: Female
  Weight: 59 kg

DRUGS (23)
  1. LUVIT D3 [Concomitant]
     Active Substance: CHOLECALCIFEROL
     Dosage: 1.7 ML, WEEKLY
  2. PREDNISON STREULI [Concomitant]
     Active Substance: PREDNISONE
     Dosage: 2 MG, DAILY (1 MG, 2-0-0-0)
     Route: 048
  3. XYZAL [Concomitant]
     Active Substance: LEVOCETIRIZINE DIHYDROCHLORIDE
     Dosage: 5 MG, DAILY
     Dates: start: 20190712
  4. MOTILIUM [Concomitant]
     Active Substance: DOMPERIDONE
     Dosage: UNK
  5. METHOTREXATE PFIZER [Suspect]
     Active Substance: METHOTREXATE
     Dosage: 7.5 MG, DAILY
     Route: 048
     Dates: start: 20190710, end: 20190719
  6. STERI NEB IPRAMOL [Concomitant]
     Active Substance: ALBUTEROL SULFATE\IPRATROPIUM BROMIDE
     Dosage: 2 MG, DAILY (1-1-1-1 HUBS (REPORTED AS INHAL PIECE)
     Route: 055
     Dates: start: 20190629, end: 20190722
  7. METHOTREXATE PFIZER [Suspect]
     Active Substance: METHOTREXATE
     Dosage: 7.5 MG, WEEKLY
     Route: 048
     Dates: end: 20190710
  8. NOVALGIN (METAMIZOLE SODIUM) [Suspect]
     Active Substance: METAMIZOLE SODIUM
     Dosage: 40 GTT, AS NEEDED (AS NECESSARY)
     Route: 048
     Dates: start: 20190630, end: 20190716
  9. TRANSTEC [Concomitant]
     Active Substance: BUPRENORPHINE
     Dosage: 1 DF, UNK
     Dates: start: 20190716
  10. FRAGMIN [Suspect]
     Active Substance: DALTEPARIN SODIUM
     Dosage: 5000 IU, UNK
     Route: 058
     Dates: start: 20190629, end: 20190722
  11. MYRTAVEN [Concomitant]
     Dosage: 58 MG, DAILY (1-0-0-0)
     Route: 048
  12. PANTOPRAZOL SANDOZ [Concomitant]
     Active Substance: PANTOPRAZOLE SODIUM
     Dosage: 40 MG, DAILY (1-0-0-0)
     Route: 048
     Dates: start: 20190629
  13. SOLMUCOL [Concomitant]
     Active Substance: ACETYLCYSTEINE
     Dosage: 600 MG, DAILY (1-0-0-0)
     Route: 048
     Dates: end: 20190712
  14. BELOC ZOK [Concomitant]
     Active Substance: METOPROLOL SUCCINATE
     Dosage: 50 MG, DAILY(1-0-0-0)
     Route: 048
  15. BELOC ZOK [Concomitant]
     Active Substance: METOPROLOL SUCCINATE
     Dosage: 12.5 MG, DAILY
     Route: 048
  16. SERESTA EXPIDET [Concomitant]
     Active Substance: OXAZEPAM
     Dosage: 7.5 MG, AS NEEDED (AS NECESSARY)
     Route: 048
     Dates: end: 20190628
  17. DROSSAFOL COMP [Concomitant]
     Dosage: 5 MG, DAILY (1-0-0-0)
     Route: 048
     Dates: end: 20190719
  18. SERESTA EXPIDET [Concomitant]
     Active Substance: OXAZEPAM
     Dosage: 7.5 MG, DAILY (15 MG, 0-0-0-0.5)
     Route: 048
     Dates: start: 20190629
  19. ALVESCO [Concomitant]
     Active Substance: CICLESONIDE
     Dosage: 80 UG, 2X/DAY (1-0-1-0)
     Route: 055
     Dates: end: 20190722
  20. NOVALGIN (METAMIZOLE SODIUM) [Suspect]
     Active Substance: METAMIZOLE SODIUM
     Dosage: 40 GTT, 4X/DAY (1-1-1-1)
     Route: 048
     Dates: start: 20190716, end: 20190722
  21. SANDOZ CALCIUM D3 [Concomitant]
     Active Substance: CALCIUM CARBONATE\CHOLECALCIFEROL
     Dosage: 500/440 MG, DAILY(0-1-0-0)
     Route: 048
  22. TORASEMID SANDOZ [Concomitant]
     Active Substance: TORSEMIDE
     Dosage: 30 MG, UNK
     Route: 048
     Dates: start: 20190712, end: 20190809
  23. DUROGESIC [Concomitant]
     Active Substance: FENTANYL
     Dosage: 12 UG/H, ALTERNATE DAY
     Route: 062
     Dates: end: 20190716

REACTIONS (13)
  - Accidental overdose [Recovered/Resolved]
  - Pleural effusion [Unknown]
  - Hypophagia [Unknown]
  - Thrombocytopenia [Recovered/Resolved]
  - Colitis [Recovered/Resolved]
  - Neutropenia [Unknown]
  - Haematemesis [Unknown]
  - Dyspepsia [Unknown]
  - Leukopenia [Recovered/Resolved]
  - Haemoglobin decreased [Unknown]
  - Pain [Unknown]
  - Mouth ulceration [Recovered/Resolved]
  - Dermatitis [Unknown]

NARRATIVE: CASE EVENT DATE: 20190629
